FAERS Safety Report 8969976 (Version 1)
Quarter: 2012Q4

REPORT INFORMATION
  Report Type: 
  Country: US (occurrence: US)
  Receive Date: 20121217
  Receipt Date: 20121217
  Transmission Date: 20130627
  Serious: Yes (Disabling, Other)
  Sender: FDA-Public Use
  Company Number: US-ELI_LILLY_AND_COMPANY-US201212002696

PATIENT
  Sex: Female

DRUGS (2)
  1. CYMBALTA [Suspect]
     Dosage: 20 mg, qd
  2. CYMBALTA [Suspect]
     Dosage: 30 mg, qd

REACTIONS (6)
  - Disability [Unknown]
  - Rash [Not Recovered/Not Resolved]
  - Erythema [Not Recovered/Not Resolved]
  - Skin haemorrhage [Unknown]
  - Scab [Not Recovered/Not Resolved]
  - Breast pain [Not Recovered/Not Resolved]
